FAERS Safety Report 5421777-2 (Version None)
Quarter: 2007Q3

REPORT INFORMATION
  Report Type: 
  Country: None (occurrence: None)
  Receive Date: 20070720
  Receipt Date: 20070327
  Transmission Date: 20080115
  Serious: Yes (Hospitalization)
  Sender: FDA-Public Use
  Company Number: PHEH2007US00880

PATIENT
  Age: 15 Year
  Sex: Male

DRUGS (10)
  1. TRILEPTAL [Suspect]
     Indication: CONVULSION
     Dosage: 825 MG, BID, NASOGASTRIC
     Dates: start: 20060901, end: 20070109
  2. FLEXERIL [Concomitant]
  3. LOVENOX (HEPARIN-FRACTION) [Concomitant]
  4. CLONIDINE [Concomitant]
  5. LORAZEPAM [Concomitant]
  6. OMEPRAZOLE [Concomitant]
  7. METOCLOPRAMIDE [Concomitant]
  8. LORATADINE [Concomitant]
  9. NYSTATIN (NYSTATIN) POWDER [Concomitant]
  10. CLINDAMYCIN (CLINDAMYCIN) [Concomitant]

REACTIONS (1)
  - PANCREATITIS [None]
